FAERS Safety Report 19653753 (Version 1)
Quarter: 2021Q3

REPORT INFORMATION
  Report Type: Report from Study
  Country: US (occurrence: US)
  Receive Date: 20210803
  Receipt Date: 20210803
  Transmission Date: 20211014
  Serious: Yes (Hospitalization)
  Sender: FDA-Public Use
  Company Number: US-PFIZER INC-202100951938

PATIENT
  Sex: Female
  Weight: 83 kg

DRUGS (10)
  1. CYCLOPHOSPHAMIDE. [Suspect]
     Active Substance: CYCLOPHOSPHAMIDE
     Dosage: UNK
     Dates: end: 20191217
  2. DEXAMETHASONE. [Suspect]
     Active Substance: DEXAMETHASONE
     Dosage: UNK
     Dates: end: 20200128
  3. METHOTREXATE SODIUM. [Suspect]
     Active Substance: METHOTREXATE SODIUM
     Dosage: TOTAL DOSE ADMINISTERED THIS COURSE (DOSE): 160 MG
     Dates: start: 20210318, end: 20210620
  4. VINCRISTINE SULFATE. [Suspect]
     Active Substance: VINCRISTINE SULFATE
     Dosage: TOTAL DOSE ADMINISTERED THIS COURSE (DOSE): 2 MG
     Dates: start: 20210603, end: 20210603
  5. MERCAPTOPURINE. [Suspect]
     Active Substance: MERCAPTOPURINE
     Dosage: TOTAL DOSE ADMINISTERED THIS COURSE (DOSE): 1275 MGUNK
     Dates: end: 20210620
  6. DOXORUBICIN HCL [Suspect]
     Active Substance: DOXORUBICIN HYDROCHLORIDE
     Dosage: UNK
     Dates: end: 20200122
  7. METHOTREXATE SODIUM. [Suspect]
     Active Substance: METHOTREXATE SODIUM
     Dosage: TOTAL DOSE ADMINISTERED THIS COURSE (DOSE): 45 MG
     Dates: end: 20210615
  8. CYTARABINE. [Suspect]
     Active Substance: CYTARABINE
     Dosage: TOTAL DOSE ADMINISTERED THIS COURSE (DOSE): 100 MG
     Dates: start: 20210604, end: 20210604
  9. MERCAPTOPURINE. [Suspect]
     Active Substance: MERCAPTOPURINE
     Dosage: TOTAL DOSE ADMINISTERED THIS COURSE (DOSE): 3200 MG
     Dates: start: 20210603, end: 20210620
  10. ONCASPAR [Suspect]
     Active Substance: PEGASPARGASE
     Dosage: UNK
     Dates: end: 20200227

REACTIONS (2)
  - Febrile neutropenia [Recovered/Resolved]
  - Febrile neutropenia [Recovered/Resolved]

NARRATIVE: CASE EVENT DATE: 20210618
